FAERS Safety Report 4402286-6 (Version None)
Quarter: 2004Q3

REPORT INFORMATION
  Report Type: 
  Country: None (occurrence: None)
  Receive Date: 20040720
  Receipt Date: 20040528
  Transmission Date: 20050211
  Serious: Yes (Other)
  Sender: FDA-Public Use
  Company Number: AU-GLAXOSMITHKLINE-B0334486A

PATIENT
  Sex: Male

DRUGS (1)
  1. LEUKERAN [Suspect]
     Route: 065

REACTIONS (2)
  - RASH PAPULAR [None]
  - T-CELL LYMPHOMA [None]
